FAERS Safety Report 4603172-9 (Version None)
Quarter: 2005Q1

REPORT INFORMATION
  Report Type: 
  Country: None (occurrence: None)
  Receive Date: 20050307
  Receipt Date: 20050222
  Transmission Date: 20050727
  Serious: Yes (Hospitalization)
  Sender: FDA-Public Use
  Company Number: 2005AP01329

PATIENT
  Age: 71 Year
  Sex: Male

DRUGS (6)
  1. DIPRIVAN [Suspect]
     Indication: SEDATIVE THERAPY
     Dosage: 5 ML /HR IVD
     Route: 041
     Dates: start: 20050215, end: 20050217
  2. DIPRIVAN [Suspect]
     Indication: SEDATIVE THERAPY
     Dosage: 20-30 ML/HOUR             (4800-7200 MG/DAY)
     Route: 042
     Dates: start: 20050218, end: 20050221
  3. CELESTONE [Concomitant]
  4. SOLU-CORTEF [Concomitant]
  5. MEROPEN [Concomitant]
  6. PASIL [Concomitant]

REACTIONS (1)
  - DELAYED RECOVERY FROM ANAESTHESIA [None]
